FAERS Safety Report 6535389-0 (Version None)
Quarter: 2010Q1

REPORT INFORMATION
  Report Type: 
  Country: None (occurrence: None)
  Receive Date: 20100113
  Receipt Date: 20100106
  Transmission Date: 20100710
  Serious: Yes (Death)
  Sender: FDA-Public Use
  Company Number: US-ASTRAZENECA-2009SE15041

PATIENT
  Age: 44 Year
  Sex: Female

DRUGS (7)
  1. SEROQUEL [Suspect]
     Indication: POST-TRAUMATIC STRESS DISORDER
     Route: 048
     Dates: start: 20070321
  2. SEROQUEL [Suspect]
     Route: 048
  3. SEROQUEL [Suspect]
     Route: 048
  4. CYMBALTA [Concomitant]
     Route: 048
  5. GEODON [Concomitant]
     Route: 048
  6. LAMICTAL [Concomitant]
     Route: 048
  7. VALIUM [Concomitant]
     Route: 048

REACTIONS (2)
  - DEATH [None]
  - OVERDOSE [None]
